FAERS Safety Report 8453864 (Version 3)
Quarter: 2013Q2

REPORT INFORMATION
  Report Type: Spontaneous
  Country: BR (occurrence: BR)
  Receive Date: 20120312
  Receipt Date: 20130503
  Transmission Date: 20140414
  Serious: Yes (Death, Other)
  Sender: FDA-Public Use
  Company Number: BR-GENZYME-FABR-1002388

PATIENT
  Age: 47 Year
  Sex: Male
  Weight: 50.5 kg

DRUGS (2)
  1. FABRAZYME [Suspect]
     Indication: FABRY^S DISEASE
     Dosage: 0.7 MG/KG, Q2W
     Route: 042
     Dates: start: 20090401, end: 20120229
  2. HYDANTOIN DERIVATIVES [Concomitant]
     Indication: CONVULSION
     Route: 065

REACTIONS (7)
  - Cardio-respiratory arrest [Fatal]
  - Septic shock [Fatal]
  - Osteomyelitis chronic [Fatal]
  - Convulsion [Fatal]
  - Blood parathyroid hormone increased [Fatal]
  - Hip fracture [Unknown]
  - Infected skin ulcer [Fatal]
